FAERS Safety Report 4548069-8 (Version None)
Quarter: 2005Q1

REPORT INFORMATION
  Report Type: 
  Country: None (occurrence: None)
  Receive Date: 20050104
  Receipt Date: 20050104
  Transmission Date: 20050727
  Serious: Yes (Hospitalization)
  Sender: FDA-Public Use
  Company Number: None

PATIENT
  Sex: Male
  Weight: 80 kg

DRUGS (21)
  1. CISPLATIN [Suspect]
     Indication: METASTASIS
     Dosage: 100MG/M2  Q3 WEEKS  INTRAVENOUS
     Route: 042
     Dates: start: 20041026, end: 20041214
  2. CISPLATIN [Suspect]
     Indication: TONGUE NEOPLASM MALIGNANT STAGE UNSPECIFIED
     Dosage: 100MG/M2  Q3 WEEKS  INTRAVENOUS
     Route: 042
     Dates: start: 20041026, end: 20041214
  3. CEFEPIME [Concomitant]
  4. NEUPOGEN [Concomitant]
  5. AMLODIPINE [Concomitant]
  6. ATENOLOL [Concomitant]
  7. SIMVASTATIN [Concomitant]
  8. LORAZEPAM [Concomitant]
  9. DOLASETRON [Concomitant]
  10. FENTANYL [Concomitant]
  11. ALLOPURINOL [Concomitant]
  12. PANTOPRAZOLE SODIUM [Concomitant]
  13. ROXICET [Concomitant]
  14. PHENERGAN [Concomitant]
  15. COMPAZINE [Concomitant]
  16. DOCUSATE [Concomitant]
  17. IMODIUM [Concomitant]
  18. POTASSIUM CHLORIDE [Concomitant]
  19. MAGNESIUM OXIDE [Concomitant]
  20. MILK OF MAGNESIA [Concomitant]
  21. MIRALAX [Concomitant]

REACTIONS (2)
  - FEBRILE NEUTROPENIA [None]
  - NAUSEA [None]
